FAERS Safety Report 17352033 (Version 1)
Quarter: 2020Q1

REPORT INFORMATION
  Report Type: Spontaneous
  Country: US (occurrence: US)
  Receive Date: 20200130
  Receipt Date: 20200130
  Transmission Date: 20200409
  Serious: Yes (Hospitalization)
  Sender: FDA-Public Use
  Company Number: US-TEVA-2020-US-1175471

PATIENT
  Age: 88 Year
  Sex: Female

DRUGS (2)
  1. ENOXAPARIN [Suspect]
     Active Substance: ENOXAPARIN
     Indication: PULMONARY EMBOLISM
     Route: 058
  2. HEPARIN [Suspect]
     Active Substance: HEPARIN SODIUM
     Indication: PULMONARY EMBOLISM
     Route: 041

REACTIONS (2)
  - Haematoma [Recovering/Resolving]
  - Compartment syndrome [Recovering/Resolving]
